FAERS Safety Report 7545819-3 (Version None)
Quarter: 2011Q2

REPORT INFORMATION
  Report Type: 
  Country: None (occurrence: None)
  Receive Date: 20110614
  Receipt Date: 20110608
  Transmission Date: 20111010
  Serious: Yes (Other)
  Sender: FDA-Public Use
  Company Number: US-B.I. PHARMACEUTICALS,INC./RIDGEFIELD-2011-BP-13142BP

PATIENT
  Sex: Male

DRUGS (9)
  1. LOVASTATIN [Concomitant]
  2. ASPIRIN [Concomitant]
  3. INDAPAMIDE [Concomitant]
  4. TERAZOSIN HCL [Concomitant]
  5. PROPAFENONE HCL [Concomitant]
  6. FOSINOPRIL SODIUM [Concomitant]
  7. PRADAXA [Suspect]
     Indication: ATRIAL FIBRILLATION
     Dosage: 300 MG
     Route: 048
     Dates: start: 20110429
  8. OMEPRAZOLE [Concomitant]
  9. METOPROLOL [Concomitant]

REACTIONS (4)
  - OROPHARYNGEAL PAIN [None]
  - GINGIVAL PAIN [None]
  - SWELLING FACE [None]
  - GLOSSODYNIA [None]
